FAERS Safety Report 9784934 (Version 3)
Quarter: 2014Q1

REPORT INFORMATION
  Report Type: Spontaneous
  Country: JP (occurrence: JP)
  Receive Date: 20131227
  Receipt Date: 20140220
  Transmission Date: 20141002
  Serious: Yes (Hospitalization, Other)
  Sender: FDA-Public Use
  Company Number: JP-AMGEN-JPNSP2013090846

PATIENT
  Age: 24 Year
  Sex: Female
  Weight: 44 kg

DRUGS (10)
  1. PRALIA [Suspect]
     Indication: OSTEOPOROSIS
     Dosage: 60 MG, QD
     Route: 058
     Dates: start: 20131212, end: 20131212
  2. ARANESP [Concomitant]
     Indication: RENAL FAILURE CHRONIC
     Route: 042
     Dates: start: 20131122
  3. AMLODIN [Concomitant]
     Indication: HYPERTENSION
     Dosage: 5 MG, QD
     Route: 065
     Dates: start: 20131205
  4. PARIET [Concomitant]
     Indication: GASTRIC ULCER
     Route: 048
     Dates: start: 20131205
  5. ALLEGRA [Concomitant]
     Indication: RENAL FAILURE CHRONIC
     Route: 048
     Dates: start: 20130807
  6. MIYA BM [Concomitant]
     Indication: GASTROINTESTINAL OEDEMA
     Route: 048
     Dates: start: 20120509
  7. MIYA BM [Concomitant]
     Indication: GASTROINTESTINAL OEDEMA
  8. NASONEX [Concomitant]
     Dosage: UNKNOWN
     Route: 065
  9. OXAROL [Concomitant]
     Indication: RENAL FAILURE CHRONIC
     Route: 042
     Dates: start: 20131122
  10. XYLOCAINE                          /00033401/ [Concomitant]
     Indication: LOCAL ANAESTHESIA
     Route: 058
     Dates: start: 20131119, end: 20131119

REACTIONS (2)
  - Hypocalcaemia [Not Recovered/Not Resolved]
  - Hyperkalaemia [Recovering/Resolving]
